FAERS Safety Report 19846217 (Version 1)
Quarter: 2021Q3

REPORT INFORMATION
  Report Type: Spontaneous
  Country: US (occurrence: US)
  Receive Date: 20210915
  Receipt Date: 20210915
  Transmission Date: 20211014
  Serious: Yes (Hospitalization)
  Sender: FDA-Public Use
  Company Number: None

PATIENT
  Age: 60 Year
  Sex: Female

DRUGS (1)
  1. DIMETHYL FUM DR STARTER [Suspect]
     Active Substance: DIMETHYL FUMARATE
     Indication: MULTIPLE SCLEROSIS
     Route: 048
     Dates: start: 202104

REACTIONS (5)
  - Pain [None]
  - Paraesthesia [None]
  - Therapy interrupted [None]
  - COVID-19 [None]
  - Hyperglycaemia [None]

NARRATIVE: CASE EVENT DATE: 20210512
